FAERS Safety Report 9422227 (Version 3)
Quarter: 2014Q1

REPORT INFORMATION
  Report Type: Spontaneous
  Country: FR (occurrence: FR)
  Receive Date: 20130726
  Receipt Date: 20140217
  Transmission Date: 20141002
  Serious: Yes (Hospitalization, Other)
  Sender: FDA-Public Use
  Company Number: FR-PFIZER INC-2013215531

PATIENT
  Age: 14 Year
  Sex: Male

DRUGS (1)
  1. ADVIL [Suspect]
     Indication: MIGRAINE
     Dosage: UNK
     Route: 048
     Dates: start: 20130518

REACTIONS (8)
  - Streptococcal infection [Recovered/Resolved with Sequelae]
  - Sinusitis [Recovered/Resolved with Sequelae]
  - Brain empyema [Recovered/Resolved with Sequelae]
  - Empyema [Recovered/Resolved with Sequelae]
  - Cranial nerve injury [Recovered/Resolved with Sequelae]
  - Diplopia [Recovered/Resolved with Sequelae]
  - Dental caries [Unknown]
  - Dysphagia [Recovered/Resolved with Sequelae]
